FAERS Safety Report 6804716-9 (Version None)
Quarter: 2010Q2

REPORT INFORMATION
  Report Type: 
  Country: None (occurrence: None)
  Receive Date: 20100628
  Receipt Date: 20070529
  Transmission Date: 20101027
  Serious: No
  Sender: FDA-Public Use
  Company Number: US-PFIZER INC-2007042540

PATIENT
  Sex: Female
  Weight: 49.09 kg

DRUGS (4)
  1. RELPAX [Suspect]
     Indication: MIGRAINE
  2. PAXIL [Concomitant]
  3. TOPAMAX [Concomitant]
  4. ADDERALL 10 [Concomitant]

REACTIONS (3)
  - DRUG INEFFECTIVE [None]
  - HEADACHE [None]
  - MIGRAINE [None]
